FAERS Safety Report 4510276-8 (Version None)
Quarter: 2004Q4

REPORT INFORMATION
  Report Type: 
  Country: None (occurrence: None)
  Receive Date: 20041119
  Receipt Date: 20041103
  Transmission Date: 20050328
  Serious: Yes (Death)
  Sender: FDA-Public Use
  Company Number: DE_041114622

PATIENT
  Sex: Male

DRUGS (1)
  1. GEMZAR [Suspect]
     Indication: METASTATIC CARCINOMA OF THE BLADDER

REACTIONS (4)
  - DRUG TOXICITY [None]
  - HEPATIC FAILURE [None]
  - RENAL FAILURE [None]
  - SUDDEN DEATH [None]
